FAERS Safety Report 4709934-1 (Version None)
Quarter: 2005Q3

REPORT INFORMATION
  Report Type: 
  Country: None (occurrence: None)
  Receive Date: 20050708
  Receipt Date: 20050630
  Transmission Date: 20060218
  Serious: Yes (Life-Threatening, Hospitalization)
  Sender: FDA-Public Use
  Company Number: DE-ROCHE-409311

PATIENT
  Age: 45 Year
  Sex: Male
  Weight: 80 kg

DRUGS (5)
  1. ANEXATE [Suspect]
     Route: 042
     Dates: start: 20050413, end: 20050413
  2. NALOXON [Concomitant]
     Route: 042
  3. ANTICHOLIUM [Concomitant]
  4. TRAMADOL HCL [Concomitant]
  5. TRANXILIUM [Concomitant]

REACTIONS (2)
  - BRADYCARDIA [None]
  - CARDIAC ARREST [None]
